FAERS Safety Report 7040009-5 (Version None)
Quarter: 2010Q4

REPORT INFORMATION
  Report Type: 
  Country: None (occurrence: None)
  Receive Date: 20101012
  Receipt Date: 20101006
  Transmission Date: 20110411
  Serious: Yes (Hospitalization, Other)
  Sender: FDA-Public Use
  Company Number: AU-AMGEN-KDC407958

PATIENT
  Sex: Male

DRUGS (16)
  1. PANITUMUMAB [Suspect]
     Indication: GASTROOESOPHAGEAL CANCER
     Route: 042
     Dates: start: 20100413
  2. CISPLATIN [Suspect]
     Dates: start: 20100413
  3. FLUOROPYRIMIDINE [Suspect]
     Dates: start: 20100413
  4. DOCETAXEL [Suspect]
     Dates: start: 20100413
  5. METOPROLOL [Suspect]
     Route: 048
     Dates: start: 20100416
  6. VITAMIN E [Concomitant]
     Route: 048
     Dates: start: 20100301
  7. MULTI-VITAMINS [Concomitant]
     Route: 048
     Dates: start: 20100301
  8. COENZYME Q10 [Concomitant]
     Route: 048
     Dates: start: 20100301
  9. SELENIUM [Concomitant]
     Route: 048
     Dates: start: 20100301
  10. ECHINACEA EXTRACT [Concomitant]
     Route: 048
     Dates: start: 20100301
  11. NEXIUM [Concomitant]
     Route: 048
     Dates: start: 20100324
  12. ASCORBIC ACID [Concomitant]
     Route: 048
     Dates: start: 20100301
  13. DEXAMETHASONE [Concomitant]
     Dates: start: 20100413
  14. LOVAZA [Concomitant]
     Route: 048
     Dates: start: 20100301
  15. TROPISETRON [Concomitant]
     Route: 042
     Dates: start: 20100414
  16. EMEND [Concomitant]
     Route: 048
     Dates: start: 20100414

REACTIONS (2)
  - ATRIAL FLUTTER [None]
  - ORTHOSTATIC HYPOTENSION [None]
